FAERS Safety Report 7880415-X (Version None)
Quarter: 2011Q4

REPORT INFORMATION
  Report Type: 
  Country: None (occurrence: None)
  Receive Date: 20111101
  Receipt Date: 20111021
  Transmission Date: 20120403
  Serious: Yes (Hospitalization, Other)
  Sender: FDA-Public Use
  Company Number: PHHY2011SG87986

PATIENT
  Age: 55 Year
  Sex: Male

DRUGS (1)
  1. GLEEVEC [Suspect]
     Indication: CHRONIC MYELOID LEUKAEMIA
     Dosage: 400 MG
     Route: 048
     Dates: start: 20110613, end: 20110722

REACTIONS (11)
  - CHOLANGITIS [None]
  - LIVER DISORDER [None]
  - HEPATITIS [None]
  - HEPATIC NECROSIS [None]
  - ASPARTATE AMINOTRANSFERASE INCREASED [None]
  - HEPATIC FUNCTION ABNORMAL [None]
  - TRANSAMINASES INCREASED [None]
  - GRANULOMA [None]
  - BILE DUCT NECROSIS [None]
  - HERPES ZOSTER [None]
  - ALANINE AMINOTRANSFERASE INCREASED [None]
